FAERS Safety Report 5140393-3 (Version None)
Quarter: 2006Q4

REPORT INFORMATION
  Report Type: 
  Country: None (occurrence: None)
  Receive Date: 20061031
  Receipt Date: 20060831
  Transmission Date: 20070319
  Serious: Yes (Hospitalization)
  Sender: FDA-Public Use
  Company Number: FR-ELI_LILLY_AND_COMPANY-FR200609000027

PATIENT
  Age: 86 Year
  Sex: Female
  Weight: 54.5 kg

DRUGS (6)
  1. FORSTEO [Suspect]
     Indication: OSTEOPOROSIS
     Dosage: 20 UG, DAILY (1/D)
     Route: 058
     Dates: start: 20060412, end: 20061003
  2. CLARADOL CAFFEINE [Concomitant]
     Indication: PAIN
     Route: 048
     Dates: start: 20060630
  3. PLAVIX [Concomitant]
  4. COTAREG [Concomitant]
  5. MOVICOL [Concomitant]
  6. OMEPRAZOLE [Concomitant]

REACTIONS (2)
  - CONFUSIONAL STATE [None]
  - HYPONATRAEMIA [None]
